FAERS Safety Report 25942731 (Version 1)
Quarter: 2025Q4

REPORT INFORMATION
  Report Type: Report from Study
  Country: US (occurrence: US)
  Receive Date: 20251021
  Receipt Date: 20251021
  Transmission Date: 20260117
  Serious: Yes (Other)
  Sender: ROCHE
  Company Number: US-ROCHE-10000410793

PATIENT
  Age: 28 Year
  Sex: Male

DRUGS (2)
  1. OCREVUS [Suspect]
     Active Substance: OCRELIZUMAB
     Indication: Multiple sclerosis
     Dosage: 600 (DIVIDED DOSE IN 2 DOSES: 300/300 MG) AND THEN 600 MG IN DIVIDED DOSES IN 2 WEEKS THEN REPEAT 60
     Route: 042
     Dates: start: 20230808
  2. OCREVUS [Suspect]
     Active Substance: OCRELIZUMAB
     Route: 042
     Dates: start: 20230822

REACTIONS (1)
  - Multiple sclerosis [Unknown]
